FAERS Safety Report 24374466 (Version 1)
Quarter: 2024Q3

REPORT INFORMATION
  Report Type: Spontaneous
  Country: CA (occurrence: CA)
  Receive Date: 20240927
  Receipt Date: 20240927
  Transmission Date: 20241017
  Serious: Yes (Hospitalization)
  Sender: SANDOZ
  Company Number: CA-SANDOZ-SDZ2024CA083145

PATIENT
  Age: 17 Year
  Sex: Male

DRUGS (7)
  1. ADALIMUMAB [Suspect]
     Active Substance: ADALIMUMAB
     Indication: Colitis
     Dosage: UNK
     Route: 058
  2. BOS TAURUS ADRENAL CORTEX CORTICOSTEROIDS [Suspect]
     Active Substance: BOS TAURUS ADRENAL CORTEX CORTICOSTEROIDS
     Dosage: UNK
     Route: 042
  3. BOS TAURUS ADRENAL CORTEX CORTICOSTEROIDS [Suspect]
     Active Substance: BOS TAURUS ADRENAL CORTEX CORTICOSTEROIDS
     Indication: Colitis
     Dosage: UNK
     Route: 048
  4. IMURAN [Suspect]
     Active Substance: AZATHIOPRINE
     Indication: Colitis
     Dosage: UNK
     Route: 065
  5. INFLIXIMAB [Suspect]
     Active Substance: INFLIXIMAB
     Indication: Colitis
     Dosage: UNK
     Route: 065
  6. TOFACITINIB [Suspect]
     Active Substance: TOFACITINIB
     Indication: Colitis
     Dosage: 10 MG
     Route: 065
  7. TOFACITINIB [Suspect]
     Active Substance: TOFACITINIB
     Dosage: 5 MG
     Route: 065

REACTIONS (4)
  - Condition aggravated [Recovered/Resolved]
  - Drug specific antibody present [Recovered/Resolved]
  - Treatment noncompliance [Recovered/Resolved]
  - Treatment failure [Recovered/Resolved]
